FAERS Safety Report 6140666-1 (Version None)
Quarter: 2009Q1

REPORT INFORMATION
  Report Type: 
  Country: None (occurrence: None)
  Receive Date: 20090331
  Receipt Date: 20090319
  Transmission Date: 20090719
  Serious: Yes (Hospitalization, Other)
  Sender: FDA-Public Use
  Company Number: ADE2009-0500

PATIENT
  Age: 75 Year
  Sex: Male

DRUGS (2)
  1. ATENOLOL [Suspect]
     Indication: ATRIAL FIBRILLATION
     Dosage: 1.25MG/DAY
  2. AMIODARONE HCL [Suspect]
     Indication: ATRIAL FIBRILLATION
     Dosage: 200MG/DAY

REACTIONS (5)
  - BRADYCARDIA [None]
  - ELECTROCARDIOGRAM QT PROLONGED [None]
  - HYPOKALAEMIA [None]
  - SYNCOPE [None]
  - TORSADE DE POINTES [None]
